FAERS Safety Report 11082413 (Version 1)
Quarter: 2015Q2

REPORT INFORMATION
  Report Type: Spontaneous
  Country: US (occurrence: US)
  Receive Date: 20150501
  Receipt Date: 20150501
  Transmission Date: 20150821
  Serious: No
  Sender: FDA-Public Use
  Company Number: US-009507513-1504USA024247

PATIENT
  Sex: Female

DRUGS (3)
  1. DEXAMETHASONE. [Suspect]
     Active Substance: DEXAMETHASONE
     Indication: ADRENOGENITAL SYNDROME
     Dosage: 0.25 MG, UNK
     Dates: start: 200204
  2. PREDNISONE. [Suspect]
     Active Substance: PREDNISONE
     Dosage: 5 MG, UNK
     Dates: start: 200208
  3. PREDNISONE. [Suspect]
     Active Substance: PREDNISONE
     Indication: ADRENOGENITAL SYNDROME
     Dosage: 6 MG, UNK
     Dates: end: 200208

REACTIONS (4)
  - Weight increased [Unknown]
  - Petit mal epilepsy [Unknown]
  - Convulsive threshold lowered [Unknown]
  - Overdose [Unknown]

NARRATIVE: CASE EVENT DATE: 2002
